FAERS Safety Report 22264215 (Version 1)
Quarter: 2023Q2

REPORT INFORMATION
  Report Type: Report from Study
  Country: BR (occurrence: BR)
  Receive Date: 20230428
  Receipt Date: 20230428
  Transmission Date: 20230722
  Serious: Yes (Other)
  Sender: FDA-Public Use
  Company Number: BR-JNJFOC-20230449602

PATIENT
  Age: 71 Year
  Sex: Female
  Weight: 62 kg

DRUGS (4)
  1. SIMPONI [Suspect]
     Active Substance: GOLIMUMAB
     Indication: Ankylosing spondylitis
     Route: 058
     Dates: start: 20211010, end: 2022
  2. SIMPONI [Suspect]
     Active Substance: GOLIMUMAB
  3. LOSARTAN [Concomitant]
     Active Substance: LOSARTAN
     Indication: Hypertension
  4. BRAMICAR [Concomitant]
     Indication: Hypertension
     Dosage: DOSE- 40/12.5

REACTIONS (3)
  - Cataract [Unknown]
  - COVID-19 [Unknown]
  - Varicose vein [Unknown]
